FAERS Safety Report 16460391 (Version 1)
Quarter: 2019Q2

REPORT INFORMATION
  Report Type: Spontaneous
  Country: DE (occurrence: DE)
  Receive Date: 20190620
  Receipt Date: 20190620
  Transmission Date: 20190711
  Serious: Yes (Death, Other)
  Sender: FDA-Public Use
  Company Number: DE-BRACCO-2019DE02999

PATIENT
  Age: 64 Year
  Sex: Male

DRUGS (1)
  1. SONOVUE [Suspect]
     Active Substance: SULFUR HEXAFLUORIDE
     Indication: ULTRASOUND SCAN
     Dosage: 2 X 1 ML, SINGLE
     Route: 042
     Dates: start: 20190612, end: 20190612

REACTIONS (4)
  - Abdominal pain upper [Not Recovered/Not Resolved]
  - Ventricular fibrillation [Fatal]
  - Epilepsy [Not Recovered/Not Resolved]
  - Abdominal pain [Not Recovered/Not Resolved]

NARRATIVE: CASE EVENT DATE: 20190612
